FAERS Safety Report 6802533-7 (Version None)
Quarter: 2010Q2

REPORT INFORMATION
  Report Type: 
  Country: None (occurrence: None)
  Receive Date: 20100628
  Receipt Date: 20100622
  Transmission Date: 20101027
  Serious: Yes (Hospitalization)
  Sender: FDA-Public Use
  Company Number: SE-TYCO HEALTHCARE/MALLINCKRODT-T201001160

PATIENT
  Sex: Male
  Weight: 94 kg

DRUGS (11)
  1. OPTIRAY 350 [Suspect]
     Indication: COMPUTERISED TOMOGRAM
     Dosage: 120 ML, SINGLE
     Route: 042
     Dates: start: 20100429, end: 20100429
  2. METFORMIN HEXAL [Concomitant]
  3. TROMBYL [Concomitant]
  4. NITROMEX [Concomitant]
  5. IMDUR [Concomitant]
  6. LASIX [Concomitant]
  7. SPIRONOLAKTON NYCOMED [Concomitant]
  8. SELOKEN                            /00376902/ [Concomitant]
  9. ENALAPRIL MALEATE [Concomitant]
  10. SIMVASTATIN [Concomitant]
  11. ACETYLCYSTEINE [Concomitant]

REACTIONS (1)
  - ANAPHYLACTIC REACTION [None]
